FAERS Safety Report 5812169-2 (Version None)
Quarter: 2008Q3

REPORT INFORMATION
  Report Type: 
  Country: None (occurrence: None)
  Receive Date: 20080716
  Receipt Date: 20080710
  Transmission Date: 20090109
  Serious: Yes (Hospitalization, Other)
  Sender: FDA-Public Use
  Company Number: US-AMGEN-STX293718

PATIENT
  Sex: Female

DRUGS (1)
  1. ENBREL [Suspect]
     Indication: RHEUMATOID ARTHRITIS
     Route: 058
     Dates: start: 20001001

REACTIONS (4)
  - BLOOD SODIUM DECREASED [None]
  - HEARING IMPAIRED [None]
  - URTICARIA [None]
  - VISUAL IMPAIRMENT [None]
